FAERS Safety Report 5213267-7 (Version None)
Quarter: 2007Q1

REPORT INFORMATION
  Report Type: 
  Country: None (occurrence: None)
  Receive Date: 20070119
  Receipt Date: 20070112
  Transmission Date: 20070707
  Serious: Yes (Other)
  Sender: FDA-Public Use
  Company Number: US-JNJFOC-20070103138

PATIENT
  Age: 67 Year
  Sex: Male

DRUGS (11)
  1. FENTANYL TRANSDERMAL SYSTEM [Suspect]
     Indication: DRUG USE FOR UNKNOWN INDICATION
     Route: 062
  2. OTHER MISCELLANEOUS PRESCRIPTION [Suspect]
     Indication: DRUG USE FOR UNKNOWN INDICATION
     Route: 048
  3. FUROSEMIDE [Concomitant]
     Route: 065
  4. COTRIMAZOLE [Concomitant]
     Route: 065
  5. THALIDOMIDE [Concomitant]
     Route: 065
  6. IRON [Concomitant]
     Route: 065
  7. PREDNISONE [Concomitant]
     Route: 065
  8. LAXATIVES [Concomitant]
     Route: 065
  9. PROTON PUMP INHIBITOR [Concomitant]
     Route: 065
  10. GASTROINTESTINAL PREP [Concomitant]
     Route: 065
  11. BACLOFEN [Concomitant]
     Route: 064

REACTIONS (2)
  - HYPOTENSION [None]
  - SEPSIS [None]
